FAERS Safety Report 14382554 (Version 2)
Quarter: 2018Q2

REPORT INFORMATION
  Report Type: Report from Study
  Country: US (occurrence: US)
  Receive Date: 20180112
  Receipt Date: 20180621
  Transmission Date: 20180711
  Serious: Yes (Other)
  Sender: FDA-Public Use
  Company Number: PHEH2018US000795

PATIENT
  Sex: Male
  Weight: 33.3 kg

DRUGS (1)
  1. OMNITROPE [Suspect]
     Active Substance: SOMATROPIN
     Indication: GROWTH HORMONE DEFICIENCY
     Dosage: QD (DAILY ON 6 DAYS PER WEEK)
     Route: 058

REACTIONS (5)
  - Loss of consciousness [Unknown]
  - Growth retardation [Unknown]
  - Device issue [Unknown]
  - Dehydration [Unknown]
  - Skin injury [Unknown]
